FAERS Safety Report 18516864 (Version 7)
Quarter: 2021Q3

REPORT INFORMATION
  Report Type: Report from Study
  Country: US (occurrence: US)
  Receive Date: 20201118
  Receipt Date: 20210713
  Transmission Date: 20211014
  Serious: No
  Sender: FDA-Public Use
  Company Number: NVSC2020US307660

PATIENT
  Age: 67 Year
  Sex: Male

DRUGS (5)
  1. ENTRESTO [Suspect]
     Active Substance: SACUBITRIL\VALSARTAN
     Indication: CARDIAC FAILURE CONGESTIVE
     Dosage: 1 DF, BID
     Route: 048
     Dates: start: 202009
  2. ENTRESTO [Suspect]
     Active Substance: SACUBITRIL\VALSARTAN
     Indication: CARDIAC FAILURE CONGESTIVE
     Dosage: 1.5 DF, BID
     Route: 065
     Dates: start: 20201117, end: 20201208
  3. ENTRESTO [Suspect]
     Active Substance: SACUBITRIL\VALSARTAN
     Dosage: UNK
     Route: 065
  4. ENTRESTO [Suspect]
     Active Substance: SACUBITRIL\VALSARTAN
     Dosage: 97/103 MG
     Route: 065
  5. ENTRESTO [Suspect]
     Active Substance: SACUBITRIL\VALSARTAN
     Dosage: 49/51 MG, BID
     Route: 065

REACTIONS (8)
  - Weight decreased [Unknown]
  - Arthritis [Unknown]
  - Blood pressure systolic increased [Recovering/Resolving]
  - Wrong technique in product usage process [Unknown]
  - Cough [Recovering/Resolving]
  - Feeling cold [Not Recovered/Not Resolved]
  - Gait disturbance [Unknown]
  - Fluid retention [Unknown]

NARRATIVE: CASE EVENT DATE: 202010
